FAERS Safety Report 16095354 (Version 6)
Quarter: 2019Q4

REPORT INFORMATION
  Report Type: Other
  Country: CA (occurrence: CA)
  Receive Date: 20190320
  Receipt Date: 20191219
  Transmission Date: 20200122
  Serious: Yes (Other)
  Sender: FDA-Public Use
  Company Number: CA-BECTON DICKINSON-2019BDN00113

PATIENT
  Age: 44 Year
  Sex: Female
  Weight: 97 kg

DRUGS (54)
  1. CHLORHEXIDINE [Suspect]
     Active Substance: CHLORHEXIDINE
  2. ABATACEPT [Suspect]
     Active Substance: ABATACEPT
     Route: 042
  3. ACTEMRA [Suspect]
     Active Substance: TOCILIZUMAB
     Dosage: 752.8 MG, 1 EVERY 4 WEEK(S)
     Route: 042
  4. ACTEMRA [Suspect]
     Active Substance: TOCILIZUMAB
     Dosage: 728 MG, 1 EVERY 4 WEEK(S)
     Route: 042
  5. CHLORHEXIDINE GLUCONATE ORAL RINSE [Suspect]
     Active Substance: CHLORHEXIDINE GLUCONATE
  6. METHOTREXATE. [Suspect]
     Active Substance: METHOTREXATE
     Indication: RHEUMATOID ARTHRITIS
  7. METHOTREXATE. [Suspect]
     Active Substance: METHOTREXATE
     Indication: RHEUMATOID ARTHRITIS
     Route: 065
  8. OXYCODONE-ACETAMINOPHEN [Suspect]
     Active Substance: ACETAMINOPHEN\OXYCODONE HYDROCHLORIDE
  9. ACTEMRA [Suspect]
     Active Substance: TOCILIZUMAB
     Dosage: 752.8 MG; 4 EVERY 1 WEEK
     Route: 042
  10. SULFAMETHOXAZOLE/TRIMETHOPRIM [Suspect]
     Active Substance: SULFAMETHOXAZOLE\TRIMETHOPRIM
  11. ACT OXYCODONE CR [Suspect]
     Active Substance: ACETAMINOPHEN\OXYCODONE HYDROCHLORIDE
  12. ACTEMRA [Suspect]
     Active Substance: TOCILIZUMAB
     Dosage: 728.0 MG; 4 EVERY 1 WEEK
     Route: 042
  13. HYDROXYCHLOROQUINE [Suspect]
     Active Substance: HYDROXYCHLOROQUINE
     Route: 065
  14. PERIOGARD ALCOHOL FREE [Suspect]
     Active Substance: CHLORHEXIDINE GLUCONATE
     Route: 002
  15. PANTOPRAZOLE [Concomitant]
     Active Substance: PANTOPRAZOLE
  16. PARACETAMOL [Concomitant]
     Active Substance: ACETAMINOPHEN
  17. PLAQUENIL [Concomitant]
     Active Substance: HYDROXYCHLOROQUINE SULFATE
  18. PREDNISONE. [Concomitant]
     Active Substance: PREDNISONE
     Indication: RHEUMATOID ARTHRITIS
     Dosage: 7.5 MG, 1X/DAY
     Route: 048
  19. ACTEMRA [Suspect]
     Active Substance: TOCILIZUMAB
     Dosage: 752.8 MG, 1X/MONTH
     Route: 042
  20. CIMZIA [Suspect]
     Active Substance: CERTOLIZUMAB PEGOL
     Route: 058
  21. ENBREL [Suspect]
     Active Substance: ETANERCEPT
     Indication: RHEUMATOID ARTHRITIS
     Dosage: UNK
     Route: 058
  22. ENBREL [Suspect]
     Active Substance: ETANERCEPT
     Dosage: UNK
  23. METHOTREXATE SODIUM. [Suspect]
     Active Substance: METHOTREXATE SODIUM
     Indication: RHEUMATOID ARTHRITIS
  24. PANTOLOC [Concomitant]
     Active Substance: PANTOPRAZOLE SODIUM
  25. ACTEMRA [Suspect]
     Active Substance: TOCILIZUMAB
     Dosage: 752.8 MG, UNK
     Route: 042
  26. CIMZIA [Suspect]
     Active Substance: CERTOLIZUMAB PEGOL
     Route: 058
  27. OXYCODONE [Suspect]
     Active Substance: OXYCODONE
  28. SIMPONI [Suspect]
     Active Substance: GOLIMUMAB
     Route: 058
  29. ARAVA [Concomitant]
     Active Substance: LEFLUNOMIDE
     Dosage: UNK
  30. CETIRIZINE [Concomitant]
     Active Substance: CETIRIZINE HYDROCHLORIDE
  31. CETIRIZINE HYDROCHLORIDE. [Concomitant]
     Active Substance: CETIRIZINE HYDROCHLORIDE
  32. PARACETAMOL/CODEINE [Concomitant]
     Active Substance: ACETAMINOPHEN\CODEINE PHOSPHATE
  33. TYLENOL #1 [Concomitant]
  34. ACETAMINOPHEN. [Suspect]
     Active Substance: ACETAMINOPHEN
  35. LEFLUNOMIDE. [Suspect]
     Active Substance: LEFLUNOMIDE
  36. ORENCIA [Suspect]
     Active Substance: ABATACEPT
     Route: 042
  37. OXYCODONE TEREPHTHALATE [Suspect]
     Active Substance: OXYCODONE TEREPHTHALATE
  38. PERIOGARD [Suspect]
     Active Substance: CHLORHEXIDINE GLUCONATE
  39. SULFAMETHOXAZOLE [Suspect]
     Active Substance: SULFAMETHOXAZOLE
  40. ARAVA [Concomitant]
     Active Substance: LEFLUNOMIDE
     Indication: RHEUMATOID ARTHRITIS
     Dosage: 20 MG, 1X/DAY
     Route: 048
  41. IBUPROFEN. [Concomitant]
     Active Substance: IBUPROFEN
  42. PREDNISONE. [Concomitant]
     Active Substance: PREDNISONE
     Dosage: UNK
  43. REACTINE [Concomitant]
     Dosage: 10 MG, 2X/DAY
  44. REACTINE [Concomitant]
     Dosage: UNK
  45. ACETAMINOPHEN/OXYCODONE HYDROCHLORIDE/OXYCODONE TEREPHTHALATE [Suspect]
     Active Substance: ACETAMINOPHEN\OXYCODONE HYDROCHLORIDE\OXYCODONE TEREPHTHALATE
  46. ACTEMRA [Suspect]
     Active Substance: TOCILIZUMAB
     Indication: RHEUMATOID ARTHRITIS
     Dosage: 728.0 MG, 1X/MONTH
     Route: 042
  47. ACTEMRA [Suspect]
     Active Substance: TOCILIZUMAB
     Dosage: UNK
  48. DESOGESTREL/ETHINYL ESTRADIOL [Concomitant]
     Active Substance: DESOGESTREL\ETHINYL ESTRADIOL
  49. HYDROXYCHLOROQUINE SULFATE. [Concomitant]
     Active Substance: HYDROXYCHLOROQUINE SULFATE
     Indication: RHEUMATOID ARTHRITIS
     Dosage: 400 MG, 1X/DAY
  50. PANTOPRAZOLE SODIUM. [Concomitant]
     Active Substance: PANTOPRAZOLE SODIUM
  51. TYLENOL [Concomitant]
     Active Substance: ACETAMINOPHEN
  52. TYLENOL WITH CODEINE [Concomitant]
     Active Substance: ACETAMINOPHEN\CODEINE PHOSPHATE
  53. ACTEMRA [Suspect]
     Active Substance: TOCILIZUMAB
     Dosage: 728.0 MG, UNK
     Route: 042
  54. OXYCODONE HYDROCHLORIDE. [Suspect]
     Active Substance: OXYCODONE HYDROCHLORIDE

REACTIONS (29)
  - Contusion [Not Recovered/Not Resolved]
  - Drug ineffective [Not Recovered/Not Resolved]
  - Dyspnoea [Not Recovered/Not Resolved]
  - Ill-defined disorder [Not Recovered/Not Resolved]
  - Pyrexia [Not Recovered/Not Resolved]
  - Hypersensitivity [Not Recovered/Not Resolved]
  - Rash [Not Recovered/Not Resolved]
  - Gastrointestinal disorder [Not Recovered/Not Resolved]
  - Pruritus [Not Recovered/Not Resolved]
  - Sinusitis [Not Recovered/Not Resolved]
  - Sleep disorder due to general medical condition, insomnia type [Not Recovered/Not Resolved]
  - Therapeutic product effect decreased [Not Recovered/Not Resolved]
  - Lower respiratory tract infection [Not Recovered/Not Resolved]
  - Arthralgia [Not Recovered/Not Resolved]
  - Contraindicated product administered [Not Recovered/Not Resolved]
  - Impaired healing [Not Recovered/Not Resolved]
  - Joint swelling [Not Recovered/Not Resolved]
  - Stomatitis [Not Recovered/Not Resolved]
  - Blister [Not Recovered/Not Resolved]
  - Irritable bowel syndrome [Not Recovered/Not Resolved]
  - Swelling [Not Recovered/Not Resolved]
  - Confusional state [Not Recovered/Not Resolved]
  - Folliculitis [Not Recovered/Not Resolved]
  - Nasopharyngitis [Not Recovered/Not Resolved]
  - Peripheral swelling [Not Recovered/Not Resolved]
  - Fatigue [Not Recovered/Not Resolved]
  - Infection [Not Recovered/Not Resolved]
  - Muscle injury [Not Recovered/Not Resolved]
  - Weight increased [Not Recovered/Not Resolved]
